FAERS Safety Report 6699725-7 (Version None)
Quarter: 2010Q2

REPORT INFORMATION
  Report Type: 
  Country: None (occurrence: None)
  Receive Date: 20100428
  Receipt Date: 20100419
  Transmission Date: 20101027
  Serious: No
  Sender: FDA-Public Use
  Company Number: 2009BI005151

PATIENT
  Age: 63 Year
  Sex: Male

DRUGS (1)
  1. TYSABRI [Suspect]
     Indication: MULTIPLE SCLEROSIS
     Route: 042
     Dates: start: 20080325

REACTIONS (6)
  - ASTHENIA [None]
  - BALANCE DISORDER [None]
  - EYE PAIN [None]
  - INSOMNIA [None]
  - NASOPHARYNGITIS [None]
  - POLLAKIURIA [None]
